FAERS Safety Report 7352257-5 (Version None)
Quarter: 2011Q1

REPORT INFORMATION
  Report Type: 
  Country: None (occurrence: None)
  Receive Date: 20110309
  Receipt Date: 20110309
  Transmission Date: 20110831
  Serious: No
  Sender: FDA-Public Use
  Company Number: None

PATIENT
  Sex: Male
  Weight: 20.1 kg

DRUGS (2)
  1. INCRELEX [Suspect]
     Indication: BODY HEIGHT BELOW NORMAL
     Dosage: 2.4MG BID SQ
     Dates: start: 20090623, end: 20100323
  2. INCRELEX [Suspect]
     Indication: GROWTH HORMONE DEFICIENCY
     Dosage: 2.4MG BID SQ
     Dates: start: 20090623, end: 20100323

REACTIONS (2)
  - TONSILLAR HYPERTROPHY [None]
  - ADENOIDAL HYPERTROPHY [None]
